FAERS Safety Report 19798567 (Version 1)
Quarter: 2021Q3

REPORT INFORMATION
  Report Type: Spontaneous
  Country: CA (occurrence: CA)
  Receive Date: 20210907
  Receipt Date: 20210907
  Transmission Date: 20211014
  Serious: Yes (Life-Threatening, Hospitalization)
  Sender: FDA-Public Use
  Company Number: CA-PFIZER INC-202101102296

PATIENT
  Age: 66 Year
  Sex: Male

DRUGS (18)
  1. DOBUTAMINE [Concomitant]
     Active Substance: DOBUTAMINE HYDROCHLORIDE
  2. ISOSORBIDE MONONITRATE. [Concomitant]
     Active Substance: ISOSORBIDE MONONITRATE
  3. MYCOSTATIN [Concomitant]
     Active Substance: NYSTATIN
  4. LEVOPHED [Concomitant]
     Active Substance: NOREPINEPHRINE BITARTRATE
  5. VANCOMYCIN [Concomitant]
     Active Substance: VANCOMYCIN
  6. LASIX [Concomitant]
     Active Substance: FUROSEMIDE
  7. PANTOLOC [Concomitant]
     Active Substance: PANTOPRAZOLE SODIUM
  8. TAZOCIN [Concomitant]
     Active Substance: PIPERACILLIN SODIUM\TAZOBACTAM SODIUM
  9. LIDOCAINE HCL [Suspect]
     Active Substance: LIDOCAINE HYDROCHLORIDE
     Dosage: UNK
  10. AMPHOJEL [ALUMINIUM HYDROXIDE] [Concomitant]
  11. FUROSEMIDE. [Concomitant]
     Active Substance: FUROSEMIDE
  12. HEPARIN [Concomitant]
     Active Substance: HEPARIN SODIUM
     Route: 042
  13. K?DUR [Concomitant]
     Active Substance: POTASSIUM CHLORIDE
  14. MILRINONE [Concomitant]
     Active Substance: MILRINONE
  15. AMIODARONE HCL [Suspect]
     Active Substance: AMIODARONE HYDROCHLORIDE
     Dosage: UNK
  16. HYDRALAZINE [Concomitant]
     Active Substance: HYDRALAZINE HYDROCHLORIDE
  17. METOCLOPRAMIDE. [Concomitant]
     Active Substance: METOCLOPRAMIDE
  18. RENVELA [Concomitant]
     Active Substance: SEVELAMER CARBONATE

REACTIONS (3)
  - Torsade de pointes [Unknown]
  - Electrocardiogram QT prolonged [Unknown]
  - Cardiac arrest [Unknown]
